FAERS Safety Report 15215339 (Version 1)
Quarter: 2018Q3

REPORT INFORMATION
  Report Type: Spontaneous
  Country: US (occurrence: US)
  Receive Date: 20180730
  Receipt Date: 20180730
  Transmission Date: 20181010
  Serious: Yes (Other)
  Sender: FDA-Public Use
  Company Number: US-SA-2018SA137718

PATIENT
  Sex: Female

DRUGS (4)
  1. ENBREL [Suspect]
     Active Substance: ETANERCEPT
  2. ARAVA [Suspect]
     Active Substance: LEFLUNOMIDE
  3. METHOTREXATE. [Suspect]
     Active Substance: METHOTREXATE
  4. SULFASALAZINE. [Suspect]
     Active Substance: SULFASALAZINE

REACTIONS (4)
  - Lupus-like syndrome [Unknown]
  - Fatigue [Unknown]
  - Nausea [Unknown]
  - White blood cell count decreased [Unknown]
